FAERS Safety Report 5067780-6 (Version None)
Quarter: 2006Q3

REPORT INFORMATION
  Report Type: 
  Country: None (occurrence: None)
  Receive Date: 20060802
  Receipt Date: 20060731
  Transmission Date: 20061208
  Serious: Yes (Other)
  Sender: FDA-Public Use
  Company Number: US-GLAXOSMITHKLINE-A0614322A

PATIENT
  Age: 20 Month
  Sex: Female

DRUGS (2)
  1. LAMICTAL [Suspect]
     Indication: BIPOLAR II DISORDER
     Dosage: 150MG PER DAY
  2. SYNTHROID [Concomitant]

REACTIONS (2)
  - APRAXIA [None]
  - DRUG EXPOSURE DURING PREGNANCY [None]
